FAERS Safety Report 24218864 (Version 1)
Quarter: 2024Q3

REPORT INFORMATION
  Report Type: Spontaneous
  Country: US (occurrence: None)
  Receive Date: 20240815
  Receipt Date: 20240815
  Transmission Date: 20241016
  Serious: Yes (Other)
  Sender: Public
  Company Number: None

PATIENT
  Sex: Female
  Weight: 97.2 kg

DRUGS (3)
  1. METHYLCOBALAMIN\NALTREXONE\TOPIRAMATE [Suspect]
     Active Substance: METHYLCOBALAMIN\NALTREXONE\TOPIRAMATE
     Indication: Weight decreased
     Dosage: FREQUENCY : TWICE A DAY;?
     Route: 048
     Dates: start: 20240214, end: 20240425
  2. BUPROPION [Suspect]
     Active Substance: BUPROPION
  3. METFORMIN [Suspect]
     Active Substance: METFORMIN HYDROCHLORIDE

REACTIONS (4)
  - Fatigue [None]
  - Fatigue [None]
  - Aspartate aminotransferase increased [None]
  - Alanine aminotransferase increased [None]
